FAERS Safety Report 14832391 (Version 5)
Quarter: 2018Q3

REPORT INFORMATION
  Report Type: Spontaneous
  Country: AU (occurrence: AU)
  Receive Date: 20180501
  Receipt Date: 20180830
  Transmission Date: 20181010
  Serious: Yes (Hospitalization)
  Sender: FDA-Public Use
  Company Number: AU-CELGENEUS-AUS-20180406989

PATIENT
  Age: 83 Year
  Sex: Male
  Weight: 80.2 kg

DRUGS (16)
  1. BISOPROLOL [Concomitant]
     Active Substance: BISOPROLOL
     Indication: ATRIAL FIBRILLATION
     Dosage: 2.5 MILLIGRAM
     Route: 048
  2. OXYCODONE [Concomitant]
     Active Substance: OXYCODONE
     Indication: PAIN
     Dosage: 5?10MG
     Route: 065
     Dates: start: 20180106
  3. ALLOPURINOL. [Concomitant]
     Active Substance: ALLOPURINOL
     Indication: PROPHYLAXIS
     Dosage: 300 MILLIGRAM
     Route: 048
     Dates: start: 20171111
  4. RIVAROXABAN [Concomitant]
     Active Substance: RIVAROXABAN
     Indication: ATRIAL FIBRILLATION
     Dosage: 15 MILLIGRAM
     Route: 048
     Dates: start: 2009
  5. POTASSIUM CHLORIDE. [Concomitant]
     Active Substance: POTASSIUM CHLORIDE
     Indication: ELECTROLYTE SUBSTITUTION THERAPY
     Route: 065
     Dates: start: 20180102
  6. RISEDRONATE [Concomitant]
     Active Substance: RISEDRONATE SODIUM
     Indication: OSTEOPOROSIS
     Dosage: 35 MILLIGRAM
     Route: 048
  7. AZACITIDINE. [Suspect]
     Active Substance: AZACITIDINE
     Dosage: 145 MILLIGRAM
     Route: 041
     Dates: start: 20180328
  8. FRUSEMIDE [Concomitant]
     Active Substance: FUROSEMIDE
     Indication: CARDIOMYOPATHY
     Dosage: 20MG OR 40MG
     Route: 048
     Dates: start: 20171219
  9. FRUSEMIDE [Concomitant]
     Active Substance: FUROSEMIDE
     Indication: PLEURAL EFFUSION
     Dosage: 20MG OR 40MG
     Route: 065
     Dates: start: 20171219
  10. SPIRONOLACTONE. [Concomitant]
     Active Substance: SPIRONOLACTONE
     Indication: PLEURAL EFFUSION
     Dosage: 25 MILLIGRAM
     Route: 065
     Dates: start: 20180105
  11. PRACINOSTAT [Concomitant]
     Active Substance: PRACINOSTAT
     Route: 048
     Dates: start: 20180328
  12. VALACICLOVIR [Concomitant]
     Active Substance: VALACYCLOVIR HYDROCHLORIDE
     Indication: PROPHYLAXIS
     Dosage: 500 MILLIGRAM
     Route: 048
     Dates: start: 20171123
  13. AZACITIDINE. [Suspect]
     Active Substance: AZACITIDINE
     Indication: ACUTE MYELOID LEUKAEMIA
     Dosage: 145 MILLIGRAM
     Route: 058
     Dates: start: 20171121, end: 20180325
  14. PRACINOSTAT [Concomitant]
     Active Substance: PRACINOSTAT
     Indication: ACUTE MYELOID LEUKAEMIA
     Route: 048
     Dates: start: 20171121, end: 20180326
  15. CANDESARTAN. [Concomitant]
     Active Substance: CANDESARTAN
     Indication: CARDIOMYOPATHY
     Dosage: 4 MILLIGRAM
     Route: 048
     Dates: start: 2009
  16. LAMIVUDINE. [Concomitant]
     Active Substance: LAMIVUDINE
     Indication: PROPHYLAXIS
     Route: 048
     Dates: start: 20171124

REACTIONS (2)
  - Bacterial sepsis [Recovered/Resolved]
  - Fracture pain [Recovering/Resolving]

NARRATIVE: CASE EVENT DATE: 20180327
